FAERS Safety Report 13625525 (Version 1)
Quarter: 2017Q2

REPORT INFORMATION
  Report Type: Spontaneous
  Country: US (occurrence: US)
  Receive Date: 20170607
  Receipt Date: 20170607
  Transmission Date: 20170830
  Serious: No
  Sender: FDA-Public Use
  Company Number: None

PATIENT
  Age: 77 Year
  Sex: Male

DRUGS (12)
  1. AZASITE [Concomitant]
     Active Substance: AZITHROMYCIN MONOHYDRATE
  2. ALFUZOSIN [Concomitant]
     Active Substance: ALFUZOSIN
  3. NUPLAZID [Suspect]
     Active Substance: PIMAVANSERIN TARTRATE
     Indication: PARKINSON^S DISEASE
     Route: 048
     Dates: start: 201606
  4. IBUPROFEN. [Concomitant]
     Active Substance: IBUPROFEN
  5. GALANTAMINE. [Concomitant]
     Active Substance: GALANTAMINE
  6. METOPROLOL. [Concomitant]
     Active Substance: METOPROLOL
  7. ATORVASTATIN [Concomitant]
     Active Substance: ATORVASTATIN
  8. QUETIAPINE. [Concomitant]
     Active Substance: QUETIAPINE
  9. RYTARY [Concomitant]
     Active Substance: CARBIDOPA\LEVODOPA
  10. FINASTERIDE. [Concomitant]
     Active Substance: FINASTERIDE
  11. ALFUZOSIN [Concomitant]
     Active Substance: ALFUZOSIN
  12. SERTRALINE [Concomitant]
     Active Substance: SERTRALINE HYDROCHLORIDE

REACTIONS (1)
  - Disease progression [None]

NARRATIVE: CASE EVENT DATE: 201706
